FAERS Safety Report 7982219-6 (Version None)
Quarter: 2011Q4

REPORT INFORMATION
  Report Type: 
  Country: None (occurrence: None)
  Receive Date: 20111213
  Receipt Date: 20111129
  Transmission Date: 20120403
  Serious: Yes (Hospitalization)
  Sender: FDA-Public Use
  Company Number: 2011AP002899

PATIENT
  Age: 38 Year
  Sex: Female

DRUGS (3)
  1. SPIRONOLACTONE [Suspect]
     Indication: CONGESTIVE CARDIOMYOPATHY
     Dosage: 12.5 MG; QD;
  2. CARVEDILOL [Suspect]
     Indication: CONGESTIVE CARDIOMYOPATHY
     Dosage: 6.25 MG;QD;
  3. LISINOPRIL [Suspect]
     Indication: CONGESTIVE CARDIOMYOPATHY
     Dosage: 10 MG;QD;

REACTIONS (3)
  - LEUKOCYTOSIS [None]
  - ASCITES [None]
  - SMALL BOWEL ANGIOEDEMA [None]
